FAERS Safety Report 7359952-2 (Version None)
Quarter: 2011Q1

REPORT INFORMATION
  Report Type: 
  Country: None (occurrence: None)
  Receive Date: 20110317
  Receipt Date: 20110314
  Transmission Date: 20110831
  Serious: Yes (Hospitalization)
  Sender: FDA-Public Use
  Company Number: US-ELI_LILLY_AND_COMPANY-US201103004491

PATIENT
  Age: 68 Year
  Sex: Female

DRUGS (12)
  1. CYMBALTA [Suspect]
     Dosage: 30 MG, DAILY (1/D)
     Dates: end: 20110313
  2. BYETTA [Concomitant]
     Indication: DIABETES MELLITUS
  3. NEXIUM [Concomitant]
  4. CLONAZEPAM [Concomitant]
  5. ZOLOFT [Concomitant]
  6. CYMBALTA [Suspect]
     Indication: MAJOR DEPRESSION
     Dosage: 90 MG, DAILY (1/D)
     Dates: start: 20080101
  7. METOPROLOL TARTRATE [Concomitant]
  8. SPIRONOLACTONE [Concomitant]
  9. CYMBALTA [Suspect]
     Dosage: 60 MG, DAILY (1/D)
  10. CRESTOR [Concomitant]
  11. METFORMIN HCL [Concomitant]
  12. TOPROL-XL [Concomitant]

REACTIONS (14)
  - RENAL DISORDER [None]
  - SINUSITIS [None]
  - POST-TRAUMATIC STRESS DISORDER [None]
  - DIZZINESS [None]
  - WEIGHT INCREASED [None]
  - WEIGHT DECREASED [None]
  - AUTOIMMUNE THYROIDITIS [None]
  - AUTOIMMUNE DISORDER [None]
  - HYPOTHYROIDISM [None]
  - SUICIDE ATTEMPT [None]
  - LIVER DISORDER [None]
  - ADVERSE EVENT [None]
  - CANDIDIASIS [None]
  - FALL [None]
